FAERS Safety Report 13298141 (Version 2)
Quarter: 2017Q1

REPORT INFORMATION
  Report Type: Spontaneous
  Country: CN (occurrence: CN)
  Receive Date: 20170306
  Receipt Date: 20170322
  Transmission Date: 20170428
  Serious: Yes (Other)
  Sender: FDA-Public Use
  Company Number: CN-PFIZER INC-2017094938

PATIENT
  Age: 47 Year
  Sex: Female

DRUGS (6)
  1. FLUOROURACIL. [Suspect]
     Active Substance: FLUOROURACIL
     Indication: ADENOCARCINOMA OF COLON
     Dosage: 400 MG/M2, DAY 1 AND 2 (14 DAY CYCLE): BOLUS INJECTION
     Dates: start: 201211
  2. FLUOROURACIL. [Suspect]
     Active Substance: FLUOROURACIL
     Indication: ADENOCARCINOMA OF COLON
     Dosage: 600 MG/M2, DAY 1 AND 2 (14 DAY CYCLE): 22 HOUR CONTINUOUS INFUSION
     Route: 041
     Dates: start: 201211
  3. CALCIUM FOLINATE [Suspect]
     Active Substance: LEUCOVORIN CALCIUM
     Indication: ADENOCARCINOMA OF COLON
     Dosage: 200 MG/M2, DAY 1 AND 2 (14 DAY CYCLE)
     Dates: start: 201211
  4. ERBITUX [Suspect]
     Active Substance: CETUXIMAB
     Indication: ADENOCARCINOMA OF COLON
     Dosage: 400 MG/M2, CYCLIC
     Dates: start: 201211
  5. IRINOTECAN HCL [Suspect]
     Active Substance: IRINOTECAN HYDROCHLORIDE
     Indication: ADENOCARCINOMA OF COLON
     Dosage: 180 MG/M2, DAY 1 (14 DAY CYCLE)
     Dates: start: 201211
  6. ERBITUX [Suspect]
     Active Substance: CETUXIMAB
     Dosage: 250 MG/M2, CYCLIC
     Dates: start: 201211

REACTIONS (3)
  - Bone marrow failure [Unknown]
  - Trichomegaly [Unknown]
  - Rash [Unknown]
